FAERS Safety Report 12945605 (Version 1)
Quarter: 2016Q4

REPORT INFORMATION
  Report Type: Spontaneous
  Country: US (occurrence: US)
  Receive Date: 20161116
  Receipt Date: 20161116
  Transmission Date: 20170207
  Serious: No
  Sender: FDA-Public Use
  Company Number: US-TEVA-712696ACC

PATIENT
  Sex: Female

DRUGS (2)
  1. AFTERA [Suspect]
     Active Substance: LEVONORGESTREL
     Indication: POST COITAL CONTRACEPTION
     Dates: start: 20161016, end: 20161016
  2. AFTERA [Suspect]
     Active Substance: LEVONORGESTREL
     Dates: start: 20161017, end: 20161017

REACTIONS (3)
  - Diarrhoea [Recovered/Resolved]
  - Vomiting [Recovered/Resolved]
  - Gastric disorder [Unknown]

NARRATIVE: CASE EVENT DATE: 20161017
